FAERS Safety Report 20905139 (Version 1)
Quarter: 2022Q2

REPORT INFORMATION
  Report Type: Spontaneous
  Country: AU (occurrence: AU)
  Receive Date: 20220602
  Receipt Date: 20220602
  Transmission Date: 20220721
  Serious: Yes (Death, Life-Threatening, Hospitalization, Other)
  Sender: FDA-Public Use
  Company Number: AU-BAXTER-2022BAX010248

PATIENT
  Age: 70 Year
  Sex: Female

DRUGS (8)
  1. DOXORUBICIN [Suspect]
     Active Substance: DOXORUBICIN
     Indication: Breast cancer
     Dosage: ON DAY 1; CYCLICAL  (60 MG/M2, 4 CYCLICAL)
     Route: 065
  2. CYCLOPHOSPHAMIDE [Suspect]
     Active Substance: CYCLOPHOSPHAMIDE
     Indication: Breast cancer
     Dosage: ON DAY 1; CYCLICAL (600 MG/M2,4 CYCLICAL)
     Route: 065
  3. PEGFILGRASTIM [Suspect]
     Active Substance: PEGFILGRASTIM
     Indication: Breast cancer stage I
     Dosage: ON DAY 2; CYCLICAL (4 CYCLICAL)
     Route: 065
  4. NETUPITANT\PALONOSETRON HYDROCHLORIDE [Suspect]
     Active Substance: NETUPITANT\PALONOSETRON HYDROCHLORIDE
     Indication: Breast cancer stage I
     Dosage: CYCLICAL (1 DOSAGE FORMS,4 CYCLICAL)
     Route: 065
  5. NETUPITANT\PALONOSETRON HYDROCHLORIDE [Suspect]
     Active Substance: NETUPITANT\PALONOSETRON HYDROCHLORIDE
     Dosage: CYCLICAL (1 DOSAGE FORMS,4 CYCLICAL)
     Route: 065
  6. DEXAMETHASONE [Suspect]
     Active Substance: DEXAMETHASONE
     Indication: Breast cancer
     Dosage: ON DAYS 2-3; CYCLICAL (16 MG,4 CYCLICAL)
     Route: 065
  7. DEXAMETHASONE [Suspect]
     Active Substance: DEXAMETHASONE
     Dosage: ON DAYS 4-5; CYCLICAL (4 MG,4 CYCLICAL)
     Route: 065
  8. DEXAMETHASONE [Suspect]
     Active Substance: DEXAMETHASONE
     Dosage: ON DAY 1; CYCLICAL (8 MG,4 CYCLICAL)
     Route: 065

REACTIONS (3)
  - Multiple organ dysfunction syndrome [Fatal]
  - Pneumocystis jirovecii pneumonia [Fatal]
  - Respiratory failure [Unknown]
